FAERS Safety Report 5568595-2 (Version None)
Quarter: 2007Q4

REPORT INFORMATION
  Report Type: 
  Country: None (occurrence: None)
  Receive Date: 20071220
  Receipt Date: 20071218
  Transmission Date: 20080405
  Serious: Yes (Other)
  Sender: FDA-Public Use
  Company Number: ES-MERCK-0712ESP00023

PATIENT
  Age: 72 Year
  Sex: Female

DRUGS (4)
  1. FOSAMAX PLUS D [Suspect]
     Indication: OSTEOPOROSIS
     Route: 048
     Dates: start: 20070216, end: 20070423
  2. OMEPRAZOLE [Concomitant]
     Route: 048
     Dates: start: 20061226
  3. CALCIUM CARBONATE AND CALCIUM GLUCONATE AND CALCIUM LACTATE [Concomitant]
     Route: 048
     Dates: start: 20070216
  4. ENALAPRIL MALEATE [Concomitant]
     Route: 048
     Dates: start: 20070403

REACTIONS (3)
  - EYE PAIN [None]
  - HEADACHE [None]
  - VISION BLURRED [None]
